FAERS Safety Report 4511653-1 (Version None)
Quarter: 2004Q4

REPORT INFORMATION
  Report Type: 
  Country: None (occurrence: None)
  Receive Date: 20041129
  Receipt Date: 20041028
  Transmission Date: 20050328
  Serious: Yes (Hospitalization)
  Sender: FDA-Public Use
  Company Number: US-BRISTOL-MYERS SQUIBB COMPANY-12748935

PATIENT
  Age: 6 Year
  Sex: Male

DRUGS (5)
  1. ABILIFY [Suspect]
     Route: 048
  2. COGENTIN [Concomitant]
  3. DEPAKOTE [Concomitant]
  4. ADDERALL 10 [Concomitant]
  5. STRATTERA [Concomitant]

REACTIONS (3)
  - ANOREXIA [None]
  - DEHYDRATION [None]
  - NEUROLEPTIC MALIGNANT SYNDROME [None]
